FAERS Safety Report 5872486-7 (Version None)
Quarter: 2008Q3

REPORT INFORMATION
  Report Type: 
  Country: None (occurrence: None)
  Receive Date: 20080905
  Receipt Date: 20080901
  Transmission Date: 20090109
  Serious: Yes (Death)
  Sender: FDA-Public Use
  Company Number: TH-ABBOTT-08P-155-0473191-00

PATIENT
  Age: 47 Year
  Sex: Male

DRUGS (2)
  1. KALETRA [Suspect]
     Indication: HIV INFECTION
     Dosage: DAILY: 800/200MG; UNIT: 400/100MG
     Route: 048
     Dates: start: 20060803
  2. AZT+ DDIC [Concomitant]
     Indication: ANTIRETROVIRAL THERAPY

REACTIONS (2)
  - LIPODYSTROPHY ACQUIRED [None]
  - ROAD TRAFFIC ACCIDENT [None]
